FAERS Safety Report 7919667-6 (Version None)
Quarter: 2011Q4

REPORT INFORMATION
  Report Type: 
  Country: None (occurrence: None)
  Receive Date: 20111117
  Receipt Date: 20111109
  Transmission Date: 20120403
  Serious: Yes (Hospitalization, Other)
  Sender: FDA-Public Use
  Company Number: BE-ABBOTT-11P-013-0865284-00

PATIENT
  Sex: Female
  Weight: 66 kg

DRUGS (6)
  1. ZOLPIDEM [Concomitant]
     Indication: PRODUCT USED FOR UNKNOWN INDICATION
     Dosage: BEFORE SLEEPING
  2. ACETAMINOPHEN AND CODEINE PHOSPHATE [Concomitant]
     Indication: PRODUCT USED FOR UNKNOWN INDICATION
     Dosage: IF NECESSARTY, 4 DAYS MAXIUMUM
  3. BISOPROLOL FUMARATE [Concomitant]
     Indication: TACHYCARDIA
     Dosage: DAILY DOSE: 10MG
     Route: 048
     Dates: end: 20111011
  4. HUMIRA [Suspect]
     Indication: PSORIATIC ARTHROPATHY
     Route: 058
     Dates: start: 20090420, end: 20111003
  5. ARAVA [Concomitant]
     Indication: ARTHRITIS
     Dosage: DAILY DOSE: 20MG
     Route: 048
     Dates: start: 20090101, end: 20111010
  6. BISOPROLOL FUMARATE [Concomitant]
     Indication: HYPERTENSION

REACTIONS (12)
  - PUSTULAR PSORIASIS [None]
  - SLEEP DISORDER [None]
  - WOUND COMPLICATION [None]
  - SKIN OEDEMA [None]
  - SEBORRHOEIC DERMATITIS [None]
  - SKIN EROSION [None]
  - SCAB [None]
  - ERYTHRODERMIC PSORIASIS [None]
  - SKIN PLAQUE [None]
  - PURPURA [None]
  - EXCORIATION [None]
  - CHILLS [None]
